FAERS Safety Report 10037209 (Version 2)
Quarter: 2014Q2

REPORT INFORMATION
  Report Type: Spontaneous
  Country: FR (occurrence: FR)
  Receive Date: 20140326
  Receipt Date: 20140604
  Transmission Date: 20141212
  Serious: Yes (Hospitalization, Other)
  Sender: FDA-Public Use
  Company Number: 2014SP001616

PATIENT
  Age: 50 Year
  Sex: Male

DRUGS (7)
  1. FLUOROURACIL [Suspect]
     Indication: COLON CANCER
     Route: 040
     Dates: start: 20140204, end: 20140205
  2. FLUOROURACIL [Suspect]
     Indication: COLON CANCER
  3. CALCIUM LEVOFOLINATE [Suspect]
     Indication: COLON CANCER
     Route: 042
     Dates: start: 20140204, end: 20140205
  4. CALCIUM LEVOFOLINATE [Suspect]
     Indication: COLON CANCER
  5. OXALIPLATIN [Concomitant]
     Indication: COLON CANCER
     Route: 042
     Dates: start: 20140204, end: 20140205
  6. PREDNISOLONE SODIUM SULFOBENZOATE [Concomitant]
     Indication: COLON CANCER
     Route: 048
     Dates: start: 20140204
  7. ANAUSIN [Concomitant]
     Route: 048
     Dates: start: 20140204

REACTIONS (5)
  - Arteriospasm coronary [Unknown]
  - Chest pain [Recovered/Resolved]
  - Troponin increased [Unknown]
  - Hepatocellular injury [Unknown]
  - Sinus tachycardia [Unknown]
